FAERS Safety Report 4690633-X (Version None)
Quarter: 2005Q2

REPORT INFORMATION
  Report Type: 
  Country: None (occurrence: None)
  Receive Date: 20050615
  Receipt Date: 20050504
  Transmission Date: 20051028
  Serious: Yes (Other)
  Sender: FDA-Public Use
  Company Number: US-GLAXOSMITHKLINE-A0557288A

PATIENT
  Age: 14 Year
  Sex: Male
  Weight: 36.4 kg

DRUGS (3)
  1. WELLBUTRIN [Suspect]
     Indication: DEPRESSION
     Route: 048
     Dates: start: 20040404, end: 20050203
  2. ZYPREXA [Concomitant]
     Dosage: 10MG PER DAY
     Route: 048
     Dates: start: 20010901
  3. ZOLOFT [Concomitant]
     Dosage: 50MG PER DAY
     Route: 048
     Dates: start: 20041101

REACTIONS (5)
  - CONTUSION [None]
  - GRAND MAL CONVULSION [None]
  - INCONTINENCE [None]
  - SCRATCH [None]
  - SOMNOLENCE [None]
